FAERS Safety Report 16813271 (Version 2)
Quarter: 2019Q4

REPORT INFORMATION
  Report Type: Spontaneous
  Country: GB (occurrence: GB)
  Receive Date: 20190916
  Receipt Date: 20191014
  Transmission Date: 20200122
  Serious: Yes (Other)
  Sender: FDA-Public Use
  Company Number: GB-BEH-2019106846

PATIENT
  Sex: Female

DRUGS (6)
  1. ALCOHOL PAD [Suspect]
     Active Substance: ISOPROPYL ALCOHOL
     Indication: VON WILLEBRAND^S DISEASE
     Dosage: 2000 INTERNATIONAL UNIT, QW
     Route: 065
  2. HAEMATE P [Suspect]
     Active Substance: ANTIHEMOPHILIC FACTOR HUMAN
     Indication: IMMUNE TOLERANCE INDUCTION
     Dosage: 2000 INTERNATIONAL UNIT, QW
     Route: 065
  3. ALCOHOL PAD [Suspect]
     Active Substance: ISOPROPYL ALCOHOL
     Dosage: 3000 INTERNATIONAL UNIT, QOD
     Route: 065
     Dates: start: 200704
  4. ALCOHOL PAD [Suspect]
     Active Substance: ISOPROPYL ALCOHOL
     Indication: IMMUNE TOLERANCE INDUCTION
     Dosage: 2000 INTERNATIONAL UNIT, QW
     Route: 065
  5. HAEMATE P [Suspect]
     Active Substance: ANTIHEMOPHILIC FACTOR HUMAN
     Indication: VON WILLEBRAND^S DISEASE
     Dosage: 2000 INTERNATIONAL UNIT, QW
     Route: 065
  6. HAEMATE P [Suspect]
     Active Substance: ANTIHEMOPHILIC FACTOR HUMAN
     Dosage: 3000 INTERNATIONAL UNIT, QOD
     Route: 065
     Dates: start: 200704

REACTIONS (5)
  - Drug ineffective for unapproved indication [Unknown]
  - Drug ineffective [Recovered/Resolved]
  - Von Willebrand^s factor inhibition [Not Recovered/Not Resolved]
  - Treatment noncompliance [Unknown]
  - Product use in unapproved indication [Unknown]

NARRATIVE: CASE EVENT DATE: 200704
